FAERS Safety Report 6895855-5 (Version None)
Quarter: 2010Q3

REPORT INFORMATION
  Report Type: 
  Country: None (occurrence: None)
  Receive Date: 20100802
  Receipt Date: 20100721
  Transmission Date: 20110219
  Serious: Yes (Other)
  Sender: FDA-Public Use
  Company Number: BR-PFIZER INC-2010044428

PATIENT
  Age: 55 Year
  Sex: Male
  Weight: 69 kg

DRUGS (4)
  1. CHAMPIX [Suspect]
     Indication: TOBACCO USER
     Dosage: 0.5 MG, 1X/DAY, 1 TABLET
     Route: 048
     Dates: start: 20100323, end: 20100325
  2. CHAMPIX [Suspect]
     Dosage: 0.5 MG, 2X/DAY
     Route: 048
     Dates: start: 20100326, end: 20100329
  3. CHAMPIX [Suspect]
     Dosage: 1 MG, 2X/DAY, EVERY 12 HOURS
     Route: 048
     Dates: start: 20100330, end: 20100601
  4. FLUOXETINE [Concomitant]
     Dosage: 5 GTT, 1X/DAY

REACTIONS (1)
  - URINARY INCONTINENCE [None]
